FAERS Safety Report 9911685 (Version 2)
Quarter: 2014Q1

REPORT INFORMATION
  Report Type: Report from Study
  Country: US (occurrence: US)
  Receive Date: 20140219
  Receipt Date: 20140219
  Transmission Date: 20141002
  Serious: Yes (Hospitalization)
  Sender: FDA-Public Use
  Company Number: US-GLAXOSMITHKLINE-Z0004316B

PATIENT
  Age: 79 Year
  Sex: Female
  Weight: 62.1 kg

DRUGS (1)
  1. OFATUMUMAB [Suspect]
     Indication: WALDENSTROM^S MACROGLOBULINAEMIA
     Route: 042
     Dates: start: 20100417

REACTIONS (5)
  - Pulmonary oedema [Recovered/Resolved]
  - Fluid overload [Recovered/Resolved]
  - Haemolysis [Recovered/Resolved]
  - Myocardial ischaemia [Recovered/Resolved]
  - Haemolytic anaemia [Recovered/Resolved]
